FAERS Safety Report 21830724 (Version 1)
Quarter: 2023Q1

REPORT INFORMATION
  Report Type: Spontaneous
  Country: US (occurrence: US)
  Receive Date: 20230106
  Receipt Date: 20230106
  Transmission Date: 20230417
  Serious: Yes (Hospitalization, Other)
  Sender: FDA-Public Use
  Company Number: US-BIOVITRUM-2023US00305

PATIENT
  Age: 0 Year
  Sex: Male

DRUGS (3)
  1. SYNAGIS [Suspect]
     Active Substance: PALIVIZUMAB
     Indication: Premature baby
     Dosage: (100MG/ML)
     Dates: start: 20221012
  2. SYNAGIS [Suspect]
     Active Substance: PALIVIZUMAB
     Indication: Laryngomalacia
  3. SYNAGIS [Suspect]
     Active Substance: PALIVIZUMAB
     Indication: Intraventricular haemorrhage neonatal

REACTIONS (1)
  - Bronchiolitis [Unknown]

NARRATIVE: CASE EVENT DATE: 20221225
